FAERS Safety Report 7333266 (Version 6)
Quarter: 2013Q1

REPORT INFORMATION
  Report Type: Report from Study
  Country: JP (occurrence: JP)
  Receive Date: 20100326
  Receipt Date: 20130218
  Transmission Date: 20140127
  Serious: Yes (Death, Hospitalization)
  Sender: FDA-Public Use
  Company Number: PHHO2010JP04552

PATIENT
  Age: 62 Year
  Sex: Female
  Weight: 44.9 kg

DRUGS (1)
  1. CGS 20267 [Suspect]
     Indication: BREAST CANCER
     Dosage: 2.5 MG, QD
     Route: 048
     Dates: start: 20071106, end: 20091222

REACTIONS (7)
  - Intracranial aneurysm [Fatal]
  - Subarachnoid haemorrhage [Fatal]
  - Altered state of consciousness [Fatal]
  - Respiratory arrest [Fatal]
  - Osteoporosis [Not Recovered/Not Resolved]
  - Hypercholesterolaemia [Not Recovered/Not Resolved]
  - Musculoskeletal stiffness [Not Recovered/Not Resolved]
